FAERS Safety Report 9225645 (Version 1)
Quarter: 2013Q2

REPORT INFORMATION
  Report Type: Spontaneous
  Country: US (occurrence: US)
  Receive Date: 20130411
  Receipt Date: 20130411
  Transmission Date: 20140414
  Serious: Yes (Life-Threatening, Hospitalization, Other)
  Sender: FDA-Public Use
  Company Number: US-WATSON-2013-05717

PATIENT
  Age: 36 Year
  Sex: Male

DRUGS (9)
  1. DOBUTAMINE HYDROCHLORIDE (WATSON LABORATORIES) [Suspect]
     Indication: RESUSCITATION
     Dosage: UNK
     Route: 042
  2. AMIODARONE HYDROCHLORIDE (UNKNOWN) [Interacting]
     Indication: RESUSCITATION
     Dosage: UNKNOWN
     Route: 042
  3. PROCAINAMIDE (WATSON LABORATORIES) [Interacting]
     Indication: RESUSCITATION
     Dosage: UNKNOWN
     Route: 042
  4. EPINEPHRINE [Interacting]
     Indication: RESUSCITATION
     Dosage: UNKNOWN
     Route: 042
  5. DOPAMINE [Interacting]
     Indication: RESUSCITATION
     Dosage: UNKNOWN
     Route: 042
  6. PROPOFOL [Concomitant]
     Indication: SEDATION
     Dosage: UNKNOWN
     Route: 065
  7. VECURONIUM [Concomitant]
     Indication: CHILLS
     Dosage: 10 MG, UNKNOWN
     Route: 065
  8. LIDOCAINE [Concomitant]
     Indication: PRODUCT USED FOR UNKNOWN INDICATION
     Dosage: 2 MG/MIN
     Route: 042
  9. ASPIRIN [Concomitant]
     Indication: PRODUCT USED FOR UNKNOWN INDICATION
     Dosage: 325 MG, UNKNOWN
     Route: 054

REACTIONS (2)
  - Ventricular fibrillation [Recovered/Resolved]
  - Drug interaction [Recovered/Resolved]
